FAERS Safety Report 24223519 (Version 2)
Quarter: 2024Q3

REPORT INFORMATION
  Report Type: Spontaneous
  Country: US (occurrence: US)
  Receive Date: 20240819
  Receipt Date: 20240821
  Transmission Date: 20241017
  Serious: Yes (Hospitalization)
  Sender: PFIZER
  Company Number: US-MLMSERVICE-20240806-PI153842-00147-1

PATIENT
  Age: 68 Year
  Sex: Male

DRUGS (1)
  1. PEGFILGRASTIM [Suspect]
     Active Substance: PEGFILGRASTIM
     Dosage: UNK

REACTIONS (4)
  - Pain in jaw [Recovered/Resolved]
  - Staphylococcal bacteraemia [Recovered/Resolved]
  - Unmasking of previously unidentified disease [Recovered/Resolved]
  - Swelling face [Recovered/Resolved]
